FAERS Safety Report 8390509-0 (Version None)
Quarter: 2012Q2

REPORT INFORMATION
  Report Type: 
  Country: None (occurrence: None)
  Receive Date: 20120529
  Receipt Date: 20120519
  Transmission Date: 20120825
  Serious: Yes (Other)
  Sender: FDA-Public Use
  Company Number: CN-JNJFOC-20111009560

PATIENT
  Sex: Male
  Weight: 20 kg

DRUGS (2)
  1. TOPAMAX [Suspect]
     Indication: EPILEPSY
     Route: 048
     Dates: start: 20110706, end: 20111019
  2. TOPAMAX [Suspect]
     Route: 048

REACTIONS (2)
  - AMBLYOPIA [None]
  - ASTIGMATISM [None]
